FAERS Safety Report 9533205 (Version 1)
Quarter: 2013Q2

REPORT INFORMATION
  Report Type: Spontaneous
  Country: US (occurrence: None)
  Receive Date: 20130507
  Receipt Date: 20130507
  Transmission Date: 20140414
  Serious: Yes (Other)
  Sender: FDA-Public Use
  Company Number: PHEH2013US002904

PATIENT
  Age: 50 Year
  Sex: Female
  Weight: 125 kg

DRUGS (12)
  1. AFINITOR [Suspect]
     Route: 048
  2. XEMPRA (IXABEPILONE) [Concomitant]
  3. CITALOPRAM (CITALOPRAM) [Concomitant]
  4. LORAZEPAM (LORAZEPAM) [Concomitant]
  5. SIMVASTATIN (SIMVASTATIN) [Concomitant]
  6. HYDROCHLOROTH (HYDROCHLOROTHIAZIDE) [Concomitant]
  7. KLOR-CON (POTASSIUM CHLORIDE) [Concomitant]
  8. LUPRON (LEUPRORELIN ACETATE) [Concomitant]
  9. MULTIPLE VITAMINS (ASCORIC ACID, ERGOCALIFEROL, FOLIC ACID, RETINOL, TOCOPHEROL, VITAMIN B NOS) [Concomitant]
  10. ASA (ACETYLSALICYLIC ACID) [Concomitant]
  11. XGEVA (DENOSUMAB) [Concomitant]
  12. ADVIL-CS (IBUPROEN, PSUDOEPHJEDRINE HYDROCHLORIDE) [Concomitant]

REACTIONS (6)
  - Headache [None]
  - Rash [None]
  - Urticaria [None]
  - Limb deformity [None]
  - Back pain [None]
  - Metastases to spine [None]
